FAERS Safety Report 15984285 (Version 2)
Quarter: 2019Q2

REPORT INFORMATION
  Report Type: Spontaneous
  Country: US (occurrence: US)
  Receive Date: 20190219
  Receipt Date: 20190518
  Transmission Date: 20190711
  Serious: No
  Sender: FDA-Public Use
  Company Number: US-ACCORD-103430

PATIENT
  Age: 70 Year
  Sex: Female
  Weight: 81.65 kg

DRUGS (5)
  1. TRAZODONE [Concomitant]
     Active Substance: TRAZODONE HYDROCHLORIDE
  2. OLMESARTAN/OLMESARTAN MEDOXOMIL [Suspect]
     Active Substance: OLMESARTAN MEDOXOMIL
     Indication: HYPERTENSION
     Dosage: DOSE: 20 MG TWO TIMES A DAY
     Route: 048
     Dates: start: 201810
  3. LORAZEPAM. [Concomitant]
     Active Substance: LORAZEPAM
  4. METOPROLOL. [Concomitant]
     Active Substance: METOPROLOL
  5. ACETYLSALICYLIC ACID [Concomitant]
     Active Substance: ASPIRIN

REACTIONS (2)
  - Product substitution issue [Unknown]
  - Dizziness [Not Recovered/Not Resolved]

NARRATIVE: CASE EVENT DATE: 201810
